FAERS Safety Report 9631168 (Version 1)
Quarter: 2013Q4

REPORT INFORMATION
  Report Type: Spontaneous
  Country: CN (occurrence: None)
  Receive Date: 20131016
  Receipt Date: 20131016
  Transmission Date: 20140711
  Serious: Yes (Other)
  Sender: FDA-Public Use
  Company Number: 2013P1019860

PATIENT
  Age: 98 Year
  Sex: Male

DRUGS (3)
  1. CITALOPRAM [Suspect]
  2. AMIODARONE [Suspect]
  3. LINEZOLID [Suspect]
     Indication: LOBAR PNEUMONIA
     Route: 042

REACTIONS (6)
  - Respiratory depression [None]
  - Serotonin syndrome [None]
  - Drug interaction [None]
  - Aspartate aminotransferase increased [None]
  - Alanine aminotransferase increased [None]
  - Blood creatine phosphokinase increased [None]
